FAERS Safety Report 24278417 (Version 1)
Quarter: 2024Q3

REPORT INFORMATION
  Report Type: Spontaneous
  Country: US (occurrence: US)
  Receive Date: 20240903
  Receipt Date: 20240903
  Transmission Date: 20241017
  Serious: Yes (Death, Other)
  Sender: AMGEN
  Company Number: US-AMGEN-USASP2024173758

PATIENT
  Age: 63 Year
  Sex: Female

DRUGS (2)
  1. BEVACIZUMAB [Suspect]
     Active Substance: BEVACIZUMAB
     Indication: Corneal neovascularisation
     Dosage: UNK
  2. DEXAMETHASONE [Concomitant]
     Active Substance: DEXAMETHASONE
     Indication: Corneal neovascularisation
     Dosage: UNK

REACTIONS (5)
  - Death [Fatal]
  - Corneal neovascularisation [Unknown]
  - Corneal graft rejection [Unknown]
  - Procedural haemorrhage [Unknown]
  - Off label use [Unknown]
